FAERS Safety Report 12834901 (Version 2)
Quarter: 2016Q4

REPORT INFORMATION
  Report Type: Spontaneous
  Country: SE (occurrence: SE)
  Receive Date: 20161010
  Receipt Date: 20161013
  Transmission Date: 20170207
  Serious: Yes (Hospitalization)
  Sender: FDA-Public Use
  Company Number: SE-ALLERGAN-1671543US

PATIENT
  Age: 44 Year
  Sex: Female

DRUGS (2)
  1. ESMYA [Suspect]
     Active Substance: ULIPRISTAL ACETATE
     Indication: UTERINE LEIOMYOMA
     Dosage: 5 MG, QD
     Route: 048
     Dates: start: 20160501, end: 20160809
  2. ESMYA [Suspect]
     Active Substance: ULIPRISTAL ACETATE
     Indication: MENORRHAGIA

REACTIONS (3)
  - Pneumonia [Unknown]
  - Pericarditis [Unknown]
  - Transient ischaemic attack [Unknown]

NARRATIVE: CASE EVENT DATE: 20160809
